FAERS Safety Report 11556841 (Version 1)
Quarter: 2015Q3

REPORT INFORMATION
  Report Type: Spontaneous
  Country: US (occurrence: US)
  Receive Date: 20150916
  Receipt Date: 20150916
  Transmission Date: 20151125
  Serious: No
  Sender: FDA-Public Use
  Company Number: US-ELI_LILLY_AND_COMPANY-US200806002949

PATIENT
  Age: 67 Year
  Sex: Female

DRUGS (2)
  1. FORTEO [Suspect]
     Active Substance: TERIPARATIDE
     Dosage: UNK, UNK
     Dates: start: 200805, end: 200806
  2. FORTEO [Suspect]
     Active Substance: TERIPARATIDE
     Dosage: UNK, UNK
     Dates: start: 200806

REACTIONS (5)
  - Muscle spasms [Not Recovered/Not Resolved]
  - Injection site urticaria [Unknown]
  - Palpitations [Unknown]
  - Insomnia [Recovered/Resolved]
  - Medial tibial stress syndrome [Not Recovered/Not Resolved]

NARRATIVE: CASE EVENT DATE: 200805
